FAERS Safety Report 9147874 (Version 2)
Quarter: 2013Q1

REPORT INFORMATION
  Report Type: Report from Study
  Country: US (occurrence: US)
  Receive Date: 20130307
  Receipt Date: 20130315
  Transmission Date: 20140127
  Serious: Yes (Hospitalization, Other)
  Sender: FDA-Public Use
  Company Number: US-ABBOTT-13P-163-1056848-00

PATIENT
  Age: 60 Year
  Sex: Female

DRUGS (5)
  1. HUMIRA [Suspect]
     Indication: PSORIATIC ARTHROPATHY
     Dates: start: 2012
  2. UNKNOWN INSULIN [Concomitant]
     Indication: DIABETES MELLITUS
  3. PLAVIX [Concomitant]
     Indication: CARDIAC DISORDER
  4. UNKNOWN MEDICATION [Concomitant]
     Indication: HEART RATE INCREASED
  5. UNKNOWN MEDICATION [Concomitant]
     Indication: DEPRESSION

REACTIONS (3)
  - Cardiac arrest [Not Recovered/Not Resolved]
  - Coronary artery occlusion [Unknown]
  - Injection site bruising [Unknown]
